FAERS Safety Report 6678613-6 (Version None)
Quarter: 2010Q2

REPORT INFORMATION
  Report Type: 
  Country: None (occurrence: None)
  Receive Date: 20100413
  Receipt Date: 20100330
  Transmission Date: 20101027
  Serious: Yes (Other)
  Sender: FDA-Public Use
  Company Number: CA-JNJFOC-20070202736

PATIENT
  Age: 40 Year
  Sex: Female
  Weight: 64 kg

DRUGS (7)
  1. INFLIXIMAB [Suspect]
     Indication: PSORIASIS
     Dosage: WEEK 6
     Route: 042
  2. INFLIXIMAB [Suspect]
     Dosage: WEEK 22
     Route: 042
  3. INFLIXIMAB [Suspect]
     Dosage: DAY 0
     Route: 042
  4. INFLIXIMAB [Suspect]
     Dosage: WEEK 14
     Route: 042
  5. INFLIXIMAB [Suspect]
     Dosage: WEEK 2
     Route: 042
  6. SERTRALINE HCL [Concomitant]
  7. ORAL CONTRACEPTIVE [Concomitant]

REACTIONS (2)
  - HEPATITIS [None]
  - LUPUS-LIKE SYNDROME [None]
